FAERS Safety Report 17545324 (Version 1)
Quarter: 2020Q1

REPORT INFORMATION
  Report Type: Spontaneous
  Country: US (occurrence: US)
  Receive Date: 20200315
  Receipt Date: 20200315
  Transmission Date: 20200409
  Serious: Yes (Life-Threatening, Disabling)
  Sender: FDA-Public Use
  Company Number: None

PATIENT
  Sex: Male

DRUGS (2)
  1. LEXAPRO [Suspect]
     Active Substance: ESCITALOPRAM OXALATE
     Indication: MENTAL DISORDER
  2. RISPERIDONE. [Suspect]
     Active Substance: RISPERIDONE
     Indication: MENTAL DISORDER

REACTIONS (11)
  - Akathisia [None]
  - Obesity [None]
  - Muscle twitching [None]
  - Amnesia [None]
  - Suicidal ideation [None]
  - Loss of libido [None]
  - Weight increased [None]
  - Apathy [None]
  - Disability [None]
  - Emotional poverty [None]
  - Insomnia [None]

NARRATIVE: CASE EVENT DATE: 20200314
